FAERS Safety Report 15802523 (Version 1)
Quarter: 2019Q1

REPORT INFORMATION
  Report Type: Spontaneous
  Country: US (occurrence: US)
  Receive Date: 20190109
  Receipt Date: 20190109
  Transmission Date: 20190417
  Serious: No
  Sender: FDA-Public Use
  Company Number: US-GLAXOSMITHKLINE-US2019000949

PATIENT
  Age: 62 Year
  Sex: Female

DRUGS (1)
  1. NICODERM CQ [Suspect]
     Active Substance: NICOTINE
     Indication: SMOKING CESSATION THERAPY
     Dosage: 21 MG, 1D
     Route: 061
     Dates: start: 20181222

REACTIONS (4)
  - Abnormal dreams [Recovering/Resolving]
  - Application site warmth [Unknown]
  - Headache [Recovering/Resolving]
  - Application site erythema [Unknown]

NARRATIVE: CASE EVENT DATE: 20181222
